FAERS Safety Report 5863002-4 (Version None)
Quarter: 2008Q3

REPORT INFORMATION
  Report Type: 
  Country: None (occurrence: None)
  Receive Date: 20080828
  Receipt Date: 20080821
  Transmission Date: 20090109
  Serious: Yes (Other)
  Sender: FDA-Public Use
  Company Number: US-AVENTIS-200814622US

PATIENT
  Sex: Female
  Weight: 48.18 kg

DRUGS (8)
  1. FEXOFENADINE HYDROCHLORIDE [Suspect]
     Dates: start: 20080101
  2. CELEXA [Suspect]
     Indication: DEPRESSION
     Dosage: DOSE: UNK
  3. EVOXAC [Suspect]
  4. CYMBALTA [Concomitant]
     Indication: DEPRESSION
     Dosage: DOSE: UNK
     Dates: start: 20080717
  5. ASPIRIN [Concomitant]
     Dosage: DOSE: UNK
  6. LYRICA [Concomitant]
     Dosage: DOSE: UNK
  7. RELPAX [Concomitant]
     Dosage: DOSE: UNK
  8. EVISTA [Concomitant]
     Indication: OSTEOPOROSIS
     Dosage: DOSE: UNK
     Dates: start: 20070330

REACTIONS (4)
  - CHEST PAIN [None]
  - HYPOTENSION [None]
  - RESTLESSNESS [None]
  - SOMNOLENCE [None]
